FAERS Safety Report 9227257 (Version 1)
Quarter: 2013Q2

REPORT INFORMATION
  Report Type: Spontaneous
  Country: CA (occurrence: CA)
  Receive Date: 20130412
  Receipt Date: 20130412
  Transmission Date: 20140414
  Serious: Yes (Hospitalization)
  Sender: FDA-Public Use
  Company Number: PHHY2013CA035011

PATIENT
  Sex: Male

DRUGS (3)
  1. ACLASTA [Suspect]
     Indication: OSTEOPOROSIS
     Dosage: UNK
     Route: 042
     Dates: start: 20100505
  2. ACLASTA [Suspect]
     Dosage: UNK
     Route: 042
     Dates: start: 20110519
  3. ACLASTA [Suspect]
     Dosage: UNK
     Route: 042
     Dates: start: 20120522

REACTIONS (1)
  - Chronic obstructive pulmonary disease [Unknown]
